FAERS Safety Report 6815702-7 (Version None)
Quarter: 2010Q3

REPORT INFORMATION
  Report Type: 
  Country: None (occurrence: None)
  Receive Date: 20100702
  Receipt Date: 20100625
  Transmission Date: 20110219
  Serious: Yes (Hospitalization, Other)
  Sender: FDA-Public Use
  Company Number: US-AMGEN-KDL420756

PATIENT
  Sex: Female

DRUGS (2)
  1. ENBREL [Suspect]
     Indication: PSORIASIS
     Route: 058
     Dates: start: 20050501
  2. METHOTREXATE [Concomitant]
     Route: 048

REACTIONS (5)
  - INFECTED CYST [None]
  - MULTIPLE SCLEROSIS [None]
  - NAUSEA [None]
  - PSORIASIS [None]
  - PUSTULAR PSORIASIS [None]
